FAERS Safety Report 10074347 (Version 1)
Quarter: 2014Q2

REPORT INFORMATION
  Report Type: Spontaneous
  Country: US (occurrence: US)
  Receive Date: 20140411
  Receipt Date: 20140411
  Transmission Date: 20141212
  Serious: No
  Sender: FDA-Public Use
  Company Number: US-SANOFI-AVENTIS-2013SA053813

PATIENT
  Age: 77 Year
  Sex: Female

DRUGS (4)
  1. ALLEGRA D [Suspect]
     Indication: HYPERSENSITIVITY
     Dosage: DOSAGE - 60MG / 120MG
     Route: 048
     Dates: start: 20130507, end: 20130507
  2. ALLEGRA D [Suspect]
     Indication: UNEVALUABLE EVENT
     Dosage: DOSAGE - 60MG / 120MG
     Route: 048
     Dates: start: 20130507, end: 20130507
  3. NEXIUM [Concomitant]
  4. DIPHENHYDRAMINE [Concomitant]

REACTIONS (1)
  - Insomnia [Not Recovered/Not Resolved]
